FAERS Safety Report 11970000 (Version 6)
Quarter: 2016Q2

REPORT INFORMATION
  Report Type: Spontaneous
  Country: US (occurrence: US)
  Receive Date: 20160128
  Receipt Date: 20160519
  Transmission Date: 20160815
  Serious: Yes (Life-Threatening, Hospitalization, Disabling, Other)
  Sender: FDA-Public Use
  Company Number: PHHY2015US065521

PATIENT
  Age: 27 Year
  Sex: Female

DRUGS (36)
  1. LACTULOSE. [Suspect]
     Active Substance: LACTULOSE
     Indication: PRODUCT USED FOR UNKNOWN INDICATION
     Dosage: UNK
     Route: 065
  2. BUPIVACAINE. [Suspect]
     Active Substance: BUPIVACAINE
     Dosage: 3.997 MG, QD
     Route: 065
  3. CALCIUM [Suspect]
     Active Substance: CALCIUM
     Indication: PRODUCT USED FOR UNKNOWN INDICATION
     Dosage: UNK
     Route: 065
  4. MARIJUANA [Suspect]
     Active Substance: CANNABIS SATIVA SUBSP. INDICA TOP
     Indication: PRODUCT USED FOR UNKNOWN INDICATION
     Dosage: UNK
     Route: 065
  5. MULTI VITAMIN [Suspect]
     Active Substance: VITAMINS
     Indication: PRODUCT USED FOR UNKNOWN INDICATION
     Dosage: UNK
     Route: 065
  6. CO ONDANSETRON [Suspect]
     Active Substance: ONDANSETRON
     Indication: PRODUCT USED FOR UNKNOWN INDICATION
     Dosage: UNK
     Route: 065
  7. SCOPOLAMINE [Suspect]
     Active Substance: SCOPOLAMINE
     Indication: PRODUCT USED FOR UNKNOWN INDICATION
     Dosage: UNK (EVERY 72 HOURS/PRN)
     Route: 062
  8. BACLOFEN INTRATHECAL [Suspect]
     Active Substance: BACLOFEN
     Dosage: 499.6 UG, QD
     Route: 037
  9. SULINDAC. [Suspect]
     Active Substance: SULINDAC
     Indication: PRODUCT USED FOR UNKNOWN INDICATION
     Dosage: 200 MG, QD
     Route: 065
     Dates: start: 201306
  10. KEFLEX [Suspect]
     Active Substance: CEPHALEXIN
     Indication: PRODUCT USED FOR UNKNOWN INDICATION
     Dosage: 50 MG, TID
     Route: 065
  11. BACLOFEN INTRATHECAL [Suspect]
     Active Substance: BACLOFEN
     Dosage: BOLUS
     Route: 037
  12. BACLOFEN. [Suspect]
     Active Substance: BACLOFEN
     Indication: PRODUCT USED FOR UNKNOWN INDICATION
     Dosage: 10 MG, UNK
     Route: 065
  13. LIDOCAINE. [Suspect]
     Active Substance: LIDOCAINE
     Indication: PRODUCT USED FOR UNKNOWN INDICATION
     Dosage: UNK
     Route: 065
  14. BUPIVACAINE. [Suspect]
     Active Substance: BUPIVACAINE
     Indication: PRODUCT USED FOR UNKNOWN INDICATION
     Dosage: 0.999 MG, QD
     Route: 037
     Dates: start: 20150526, end: 20150526
  15. FIORICET [Suspect]
     Active Substance: ACETAMINOPHEN\BUTALBITAL\CAFFEINE
     Indication: PRODUCT USED FOR UNKNOWN INDICATION
     Dosage: UNK UNK, PRN (EVERY 4 HOURS)
     Route: 065
  16. OMEPRAZOLE. [Suspect]
     Active Substance: OMEPRAZOLE
     Indication: PRODUCT USED FOR UNKNOWN INDICATION
     Dosage: 20 MG, QD
     Route: 065
  17. COLACE [Suspect]
     Active Substance: DOCUSATE SODIUM
     Indication: PRODUCT USED FOR UNKNOWN INDICATION
     Dosage: 100 MG, BID
     Route: 065
  18. LYRICA [Suspect]
     Active Substance: PREGABALIN
     Indication: PRODUCT USED FOR UNKNOWN INDICATION
     Dosage: 50 MG, TID
     Route: 065
  19. SENOKOT [Suspect]
     Active Substance: SENNOSIDES
     Indication: PRODUCT USED FOR UNKNOWN INDICATION
     Dosage: UNK, QD
     Route: 065
  20. VITAMIIN C [Suspect]
     Active Substance: ASCORBIC ACID
     Indication: PRODUCT USED FOR UNKNOWN INDICATION
     Dosage: UNK, QD
     Route: 065
  21. ZOVIRAX [Suspect]
     Active Substance: ACYCLOVIR
     Indication: PRODUCT USED FOR UNKNOWN INDICATION
     Route: 065
  22. BACLOFEN INTRATHECAL [Suspect]
     Active Substance: BACLOFEN
     Indication: PRODUCT USED FOR UNKNOWN INDICATION
     Dosage: 0.5 UG, QD
     Route: 037
     Dates: start: 20150526, end: 20150526
  23. CLONIDINE. [Suspect]
     Active Substance: CLONIDINE
     Indication: PRODUCT USED FOR UNKNOWN INDICATION
     Dosage: 0.1 MG, BID
     Route: 065
  24. MORPHINE [Suspect]
     Active Substance: MORPHINE
     Indication: PRODUCT USED FOR UNKNOWN INDICATION
     Dosage: 0.999 UG, QD
     Route: 037
  25. FENTANYL. [Suspect]
     Active Substance: FENTANYL
     Indication: PRODUCT USED FOR UNKNOWN INDICATION
     Dosage: 2.5 MG, QD
     Route: 037
     Dates: start: 20150526, end: 20150526
  26. FLEXERIL [Suspect]
     Active Substance: CYCLOBENZAPRINE HYDROCHLORIDE
     Indication: PRODUCT USED FOR UNKNOWN INDICATION
     Dosage: 10 MG, UNK
     Route: 065
  27. BACLOFEN. [Suspect]
     Active Substance: BACLOFEN
     Dosage: 0.5 UG, QD
     Route: 065
  28. ZOFRAN [Suspect]
     Active Substance: ONDANSETRON HYDROCHLORIDE
     Indication: PRODUCT USED FOR UNKNOWN INDICATION
     Dosage: 4 MG, TID PRN
     Route: 065
  29. OMEPRAZOLE. [Suspect]
     Active Substance: OMEPRAZOLE
     Indication: PRODUCT USED FOR UNKNOWN INDICATION
     Dosage: 20 MG, QD
     Route: 065
  30. ATIVAN [Suspect]
     Active Substance: LORAZEPAM
     Indication: MUSCLE SPASMS
     Dosage: 1 MG, UNK (4 HOUR)
     Route: 065
  31. PROAIR HFA [Suspect]
     Active Substance: ALBUTEROL SULFATE
     Indication: PRODUCT USED FOR UNKNOWN INDICATION
     Dosage: UNK, PRN
     Route: 065
  32. TAMOXIFEN [Suspect]
     Active Substance: TAMOXIFEN
     Indication: PRODUCT USED FOR UNKNOWN INDICATION
     Dosage: 40 MG, QD
     Route: 065
     Dates: start: 201306
  33. IMITREX [Suspect]
     Active Substance: SUMATRIPTAN SUCCINATE
     Indication: PRODUCT USED FOR UNKNOWN INDICATION
     Dosage: 100 MG, PRN
     Route: 065
  34. VITAMIN D [Suspect]
     Active Substance: CHOLECALCIFEROL
     Indication: PRODUCT USED FOR UNKNOWN INDICATION
     Dosage: UNK
     Route: 065
  35. BENADRYL                           /00647601/ [Suspect]
     Active Substance: CAMPHOR\DIPHENHYDRAMINE\ZINC OXIDE
     Indication: PRODUCT USED FOR UNKNOWN INDICATION
     Dosage: 25 MG, PRN
     Route: 065
  36. IMITREX [Suspect]
     Active Substance: SUMATRIPTAN SUCCINATE
     Indication: PRODUCT USED FOR UNKNOWN INDICATION
     Dosage: 100 MG, PRN
     Route: 065

REACTIONS (69)
  - Blood creatinine decreased [Unknown]
  - Femoral nerve injury [Unknown]
  - Heart rate increased [Unknown]
  - Joint range of motion decreased [Unknown]
  - Injury associated with device [Unknown]
  - Anxiety [Unknown]
  - Malaise [Unknown]
  - Myalgia [Unknown]
  - Emotional distress [Unknown]
  - Balance disorder [Unknown]
  - Back pain [Unknown]
  - Weight decreased [Unknown]
  - Neutrophil count increased [Unknown]
  - Nausea [Unknown]
  - Wound infection [Unknown]
  - Incision site pain [Unknown]
  - Unresponsive to stimuli [Recovered/Resolved]
  - Irritability [Unknown]
  - Disturbance in attention [Unknown]
  - Depression [Unknown]
  - Blood pressure decreased [Unknown]
  - Chest pain [Unknown]
  - Gait disturbance [Unknown]
  - Mobility decreased [Unknown]
  - Haemoglobin decreased [Unknown]
  - Pain [Unknown]
  - Dyspnoea [Unknown]
  - Performance status decreased [Unknown]
  - Peroneal nerve palsy [Unknown]
  - Arthralgia [Unknown]
  - Movement disorder [Unknown]
  - Monoplegia [Unknown]
  - Nervous system disorder [Unknown]
  - Tachycardia [Unknown]
  - Palpitations [Unknown]
  - Somnolence [Unknown]
  - Respiratory failure [Unknown]
  - Muscular weakness [Unknown]
  - Arrhythmia [Unknown]
  - Paraesthesia [Unknown]
  - Overdose [Unknown]
  - No therapeutic response [Unknown]
  - Scar [Unknown]
  - Chest discomfort [Unknown]
  - Coordination abnormal [Unknown]
  - Faecaloma [Unknown]
  - Blood glucose decreased [Unknown]
  - Hypotension [Unknown]
  - Hypoventilation [Unknown]
  - Hypoaesthesia [Unknown]
  - Mean cell volume decreased [Unknown]
  - Red cell distribution width increased [Unknown]
  - Cognitive disorder [Unknown]
  - Platelet count increased [Unknown]
  - Night sweats [Unknown]
  - Abdominal pain [Unknown]
  - Deformity [Unknown]
  - Cardiac arrest [Unknown]
  - Fall [Unknown]
  - Gastrointestinal disorder [Unknown]
  - Asthenia [Unknown]
  - Loss of consciousness [Unknown]
  - Respiratory distress [Recovered/Resolved]
  - Constipation [Unknown]
  - Fatigue [Unknown]
  - Pain in extremity [Unknown]
  - Abdominal pain upper [Unknown]
  - Decreased appetite [Unknown]
  - Drug administration error [Unknown]

NARRATIVE: CASE EVENT DATE: 20150526
